FAERS Safety Report 16956539 (Version 3)
Quarter: 2019Q4

REPORT INFORMATION
  Report Type: Spontaneous
  Country: CN (occurrence: CN)
  Receive Date: 20191024
  Receipt Date: 20191030
  Transmission Date: 20200122
  Serious: Yes (Death, Hospitalization)
  Sender: FDA-Public Use
  Company Number: CN-CELGENEUS-CHN-20191008244

PATIENT
  Age: 71 Year
  Sex: Male
  Weight: 50 kg

DRUGS (14)
  1. ABRAXANE [Suspect]
     Active Substance: PACLITAXEL
     Indication: NON-SMALL CELL LUNG CANCER STAGE IV
     Dosage: 100 MILLIGRAM/SQ. METER
     Route: 041
     Dates: start: 20190510, end: 20190619
  2. CARBOPLATIN. [Suspect]
     Active Substance: CARBOPLATIN
     Indication: NON-SMALL CELL LUNG CANCER STAGE IV
     Dosage: AUC 5
     Route: 041
     Dates: start: 20190510, end: 20190619
  3. METHYLPREDNISOLONE. [Concomitant]
     Active Substance: METHYLPREDNISOLONE
     Indication: IMMUNE SYSTEM DISORDER
     Dosage: 80 MILLIGRAM
     Route: 065
     Dates: start: 20190619
  4. FERRIC POLYSACCHARIDE COMPLEX [Concomitant]
     Active Substance: FERRIC POLYSACCHARIDE COMPLEX
     Indication: PRODUCT USED FOR UNKNOWN INDICATION
     Dosage: 150 MILLIGRAM
     Route: 065
     Dates: start: 20190524, end: 20190619
  5. ADEMETIONINE 1,4-BUTANEDISULFONATE [Concomitant]
     Indication: HEPATIC FAILURE
     Dosage: 1000 MILLIGRAM
     Route: 041
     Dates: start: 20190619
  6. ADEMETIONINE 1,4-BUTANEDISULFONATE [Concomitant]
     Indication: PRODUCT USED FOR UNKNOWN INDICATION
     Dosage: 600 MILLIGRAM
     Route: 065
     Dates: start: 20190618, end: 20190618
  7. NIFEDIPINE. [Concomitant]
     Active Substance: NIFEDIPINE
     Indication: BLOOD PRESSURE MANAGEMENT
     Dosage: 30 MILLIGRAM
     Route: 048
  8. POTASSIUM CHLORIDE. [Concomitant]
     Active Substance: POTASSIUM CHLORIDE
     Indication: HYPOKALAEMIA
     Dosage: 1500 MILLIGRAM
     Route: 048
  9. MAGNESIUM ISOGLYCYRRHIZINATE [Concomitant]
     Active Substance: MAGNESIUM ISOGLYCYRRHIZINATE
     Indication: PRODUCT USED FOR UNKNOWN INDICATION
     Dosage: 150 MILLIGRAM
     Route: 065
     Dates: start: 20190618, end: 20190618
  10. COMPOUND GLYCYRRHIZIN [Concomitant]
     Indication: HEPATIC FUNCTION ABNORMAL
     Dosage: 75 MILLIGRAM
     Route: 048
  11. XIAONG REOXYCHOLIC ACID [Concomitant]
     Indication: CHOLESTASIS
     Dosage: 600 MILLIGRAM
     Route: 048
  12. BGB-A317/TISLELIZUMAB [Suspect]
     Active Substance: TISLELIZUMAB
     Indication: PRODUCT USED FOR UNKNOWN INDICATION
     Dosage: 200 MILLIGRAM
     Route: 041
     Dates: start: 20190510, end: 20190619
  13. LEUCOGEN [Concomitant]
     Active Substance: LEUCOGEN
     Indication: PRODUCT USED FOR UNKNOWN INDICATION
     Dosage: 60 MILLIGRAM
     Route: 048
     Dates: start: 20190513
  14. COMPOUND GLYCYRRHIZIN [Concomitant]
     Indication: HEPATIC FAILURE
     Dosage: 80 MILLILITER
     Route: 041
     Dates: start: 20190622

REACTIONS (1)
  - Hepatic failure [Fatal]

NARRATIVE: CASE EVENT DATE: 20190619
